FAERS Safety Report 4546804-6 (Version None)
Quarter: 2005Q1

REPORT INFORMATION
  Report Type: 
  Country: None (occurrence: None)
  Receive Date: 20050105
  Receipt Date: 20041125
  Transmission Date: 20050727
  Serious: Yes (Death, Other)
  Sender: FDA-Public Use
  Company Number: 2004234480JP

PATIENT
  Age: 41 Year
  Sex: Female

DRUGS (16)
  1. DOXORUBICIN HCL [Suspect]
     Indication: T-CELL LYMPHOMA
     Dosage: 400 MG CUMULATIVE DOSE,
  2. CYCLOPHOSPHAMIDE [Suspect]
     Indication: T-CELL LYMPHOMA
     Dosage: 5500 MG CUMULATIVE
  3. ETOPOSIDE [Suspect]
     Indication: T-CELL LYMPHOMA
     Dosage: 4500 MG CUMULATIVE
  4. CISPLATIN [Suspect]
     Indication: T-CELL LYMPHOMA
     Dates: end: 19911001
  5. CARBOPLATIN [Suspect]
     Indication: T-CELL LYMPHOMA
     Dates: end: 19911001
  6. PREDNISONE (PREDNISONE) [Concomitant]
  7. VINCRISTINE [Concomitant]
  8. MITOXANTRONE [Concomitant]
  9. VINDESINE (VINDESINE) [Concomitant]
  10. CYTARABINE [Concomitant]
  11. ENOCITABINE (ENOCITABINE) [Concomitant]
  12. RANIMUSTINE (RANIMUSTINE) [Concomitant]
  13. PROCARBAZINE (PROCARBAZINE) [Concomitant]
  14. BLEOMYCIN [Concomitant]
  15. DAUNORUBICIN HCL [Concomitant]
  16. MERCAPTOPURINE [Concomitant]

REACTIONS (7)
  - ACUTE MYELOID LEUKAEMIA [None]
  - BONE MARROW DEPRESSION [None]
  - CENTRAL NERVOUS SYSTEM LYMPHOMA [None]
  - CEREBELLAR TUMOUR [None]
  - CEREBRAL HAEMORRHAGE [None]
  - MYELODYSPLASTIC SYNDROME [None]
  - THERAPEUTIC RESPONSE DECREASED [None]
